FAERS Safety Report 5015015-2 (Version None)
Quarter: 2006Q2

REPORT INFORMATION
  Report Type: 
  Country: None (occurrence: None)
  Receive Date: 20060414
  Receipt Date: 20050911
  Transmission Date: 20061013
  Serious: No
  Sender: FDA-Public Use
  Company Number: 2006SP000159

PATIENT
  Age: 81 Year
  Sex: Female

DRUGS (2)
  1. LUNESTA [Suspect]
     Indication: DEPRESSION
     Dosage: 2 MG;ORAL
     Route: 048
  2. LUNESTA [Suspect]
     Indication: INSOMNIA
     Dosage: 2 MG;ORAL
     Route: 048

REACTIONS (4)
  - CONFUSIONAL STATE [None]
  - COORDINATION ABNORMAL [None]
  - HEADACHE [None]
  - INSOMNIA [None]
